FAERS Safety Report 8877873 (Version 1)
Quarter: 2012Q4

REPORT INFORMATION
  Report Type: Spontaneous
  Country: JP (occurrence: None)
  Receive Date: 20121026
  Receipt Date: 20121026
  Transmission Date: 20130627
  Serious: Yes (Death, Hospitalization)
  Sender: FDA-Public Use
  Company Number: DSA_53265_2012

PATIENT
  Sex: Female
  Weight: 49 kg

DRUGS (12)
  1. FLUOROURACIL [Suspect]
     Indication: COLON CANCER
     Dosage: (400 mg/body (283.7 mg/m2)  Intravenous bolus
     Route: 040
     Dates: start: 20100615, end: 20100616
  2. FLUOROURACIL [Suspect]
     Indication: COLON CANCER
     Dosage: (600 mg/body  (425.5 mg/m2)  Intravenous drip)
     Route: 041
     Dates: start: 20100615, end: 20100616
  3. OXALIPLATIN (OXALIPLATIN) [Suspect]
     Indication: COLON CANCER
     Dosage: (120 mg,  120 mg/body (85.1 mg/m2)  Intravenous drip)
     Route: 041
     Dates: start: 20100615, end: 20100615
  4. CALCIUM LEVOFOLINATE [Concomitant]
  5. ALOXI [Concomitant]
  6. POLARAMINE [Concomitant]
  7. DEXAMETHASONE [Concomitant]
  8. OCTREOTIDE [Concomitant]
  9. GASTER [Concomitant]
  10. MEROPEN [Concomitant]
  11. XELODA [Concomitant]
  12. TS-1 [Concomitant]

REACTIONS (8)
  - Vomiting [None]
  - Abdominal pain upper [None]
  - Pyrexia [None]
  - Tumour lysis syndrome [None]
  - Renal failure [None]
  - Diarrhoea [None]
  - Colon cancer [None]
  - Malignant neoplasm progression [None]
